FAERS Safety Report 8343316-9 (Version None)
Quarter: 2012Q2

REPORT INFORMATION
  Report Type: 
  Country: None (occurrence: None)
  Receive Date: 20120508
  Receipt Date: 20120503
  Transmission Date: 20120825
  Serious: Yes (Other)
  Sender: FDA-Public Use
  Company Number: PHHY2012GB028333

PATIENT
  Sex: Male

DRUGS (4)
  1. FLUOROURACIL [Suspect]
     Indication: TERMINAL STATE
     Dosage: UNK
     Route: 042
     Dates: start: 20111118, end: 20120313
  2. IRINOTECAN HCL [Suspect]
     Indication: TERMINAL STATE
     Dosage: UNK
     Route: 042
     Dates: start: 20111118, end: 20120313
  3. LEUCOVORIN CALCIUM [Suspect]
  4. AVASTIN [Suspect]
     Indication: COLORECTAL CANCER
     Dosage: UNK
     Route: 042
     Dates: start: 20111118, end: 20120313

REACTIONS (3)
  - INTESTINAL MUCOSAL HYPERTROPHY [None]
  - GASTROINTESTINAL OEDEMA [None]
  - INTESTINAL DILATATION [None]
